FAERS Safety Report 6498013-1 (Version None)
Quarter: 2009Q4

REPORT INFORMATION
  Report Type: 
  Country: None (occurrence: None)
  Receive Date: 20091215
  Receipt Date: 20091203
  Transmission Date: 20100525
  Serious: Yes (Hospitalization, Other)
  Sender: FDA-Public Use
  Company Number: PHEH2008US07465

PATIENT
  Sex: Male

DRUGS (32)
  1. ZOMETA [Suspect]
     Indication: BONE DENSITY ABNORMAL
     Dosage: 4 MG EVERY 4 WEEKS
     Dates: start: 20020716
  2. ZOMETA [Suspect]
     Indication: PROPHYLAXIS
  3. IBUPROFEN [Concomitant]
     Indication: PAIN
     Dosage: 800 MG, TID
  4. IBUPROFEN [Concomitant]
     Dosage: 400 MG, Q6H PRN
  5. HYZAAR [Concomitant]
     Dosage: 50/12.5MG 1/2 TABLET DAILY
  6. NIACIN [Concomitant]
     Dosage: 1000 MG EVERY HS
  7. EFFEXOR [Concomitant]
     Dosage: 225MG DAILY
  8. PROSCAR [Concomitant]
     Dosage: 10MG
  9. ASPIRIN [Concomitant]
     Dosage: 5 GR QD
  10. AMBIEN [Concomitant]
     Dosage: OCCASIONALLY
  11. CASODEX [Concomitant]
     Indication: PROSTATE CANCER
     Dosage: 50 MG, QD
     Dates: end: 20030415
  12. LUPRON [Concomitant]
     Indication: PROSTATE CANCER
     Dosage: 0.25 MG, Q3MO
     Route: 030
  13. RADIATION THERAPY [Concomitant]
     Dosage: 4 MG, EVERY 4 WEEKS
     Route: 042
     Dates: start: 20021001
  14. LIPITOR [Concomitant]
     Dosage: UNK
     Dates: end: 20040401
  15. LEXAPRO [Concomitant]
     Dosage: UNK
  16. MIDODRINE HYDROCHLORIDE [Concomitant]
     Dosage: UNK
  17. FLORINEF [Concomitant]
     Dosage: UNK
  18. SEROQUEL [Concomitant]
     Dosage: UNK
  19. ASCORBIC ACID [Concomitant]
     Dosage: UNK
  20. VITAMIN E [Concomitant]
     Dosage: UNK
  21. MULTI-VITAMINS [Concomitant]
     Dosage: UNK
  22. AROMASIN [Concomitant]
     Dosage: 25 MG, UNK
     Route: 048
  23. PROZAC [Concomitant]
     Dosage: 20MG / DAILY
     Dates: end: 20030625
  24. PROZAC [Concomitant]
     Dosage: 40 MG / DAILY
     Dates: start: 20030626
  25. MEDROL [Concomitant]
     Dosage: UNK
  26. VICODIN [Concomitant]
  27. SERZONE [Concomitant]
     Dosage: 150 MG / BID
  28. NASAL SPRAY [Concomitant]
     Dosage: UNK
  29. FLONASE [Concomitant]
     Dosage: UNK
  30. ZOLOFT [Concomitant]
     Dosage: UNK
  31. XANAX [Concomitant]
     Dosage: .125 MG / BID
  32. IMIPRAMINE [Concomitant]
     Dosage: UNK

REACTIONS (63)
  - AMNESIA [None]
  - ANHEDONIA [None]
  - ANXIETY [None]
  - ARTHRALGIA [None]
  - ATELECTASIS [None]
  - BACK PAIN [None]
  - BLADDER OPERATION [None]
  - BLOOD CHOLESTEROL INCREASED [None]
  - BLOOD TESTOSTERONE DECREASED [None]
  - BONE CYST [None]
  - CARTILAGE INJURY [None]
  - CHEST PAIN [None]
  - CONFUSIONAL STATE [None]
  - DEPRESSION [None]
  - DIARRHOEA [None]
  - DIVERTICULUM [None]
  - ENDODONTIC PROCEDURE [None]
  - ENTERITIS [None]
  - ERECTILE DYSFUNCTION [None]
  - FATIGUE [None]
  - GASTROENTERITIS RADIATION [None]
  - HAEMOGLOBIN DECREASED [None]
  - HEADACHE [None]
  - HEPATIC STEATOSIS [None]
  - HORNER'S SYNDROME [None]
  - HYPERLIPIDAEMIA [None]
  - HYPOAESTHESIA [None]
  - HYPOKALAEMIA [None]
  - INJURY [None]
  - INTERVERTEBRAL DISC DEGENERATION [None]
  - INTRAOCULAR LENS IMPLANT [None]
  - JAW DISORDER [None]
  - LIVER FUNCTION TEST ABNORMAL [None]
  - LUNG INFECTION [None]
  - LUNG NEOPLASM [None]
  - MALAISE [None]
  - METASTASES TO BONE [None]
  - METASTASES TO LYMPH NODES [None]
  - MIGRAINE [None]
  - NECK PAIN [None]
  - ORTHOSTATIC HYPOTENSION [None]
  - OSTEOARTHRITIS [None]
  - OSTEONECROSIS [None]
  - OSTEOPOROSIS [None]
  - PAIN [None]
  - PAIN IN EXTREMITY [None]
  - PROSTATE CANCER METASTATIC [None]
  - PROSTATE CANCER RECURRENT [None]
  - PROSTATIC SPECIFIC ANTIGEN INCREASED [None]
  - RENAL CYST [None]
  - RETINAL HAEMORRHAGE [None]
  - RETINAL TEAR [None]
  - RETROPERITONEAL LYMPHADENOPATHY [None]
  - SEBORRHOEIC KERATOSIS [None]
  - SIGMOIDITIS [None]
  - SLEEP DISORDER [None]
  - SLEEP TERROR [None]
  - SOMNAMBULISM [None]
  - SPINAL OSTEOARTHRITIS [None]
  - TEMPORAL ARTERITIS [None]
  - THROMBOCYTOPENIA [None]
  - TOOTH EXTRACTION [None]
  - VITREOUS FLOATERS [None]
